FAERS Safety Report 6981772-9 (Version None)
Quarter: 2010Q3

REPORT INFORMATION
  Report Type: 
  Country: None (occurrence: None)
  Receive Date: 20100914
  Receipt Date: 20091027
  Transmission Date: 20110219
  Serious: No
  Sender: FDA-Public Use
  Company Number: US-PFIZER INC-2009258784

PATIENT
  Sex: Male
  Weight: 102 kg

DRUGS (7)
  1. LYRICA [Suspect]
     Indication: PAIN
     Dosage: 75 MG, 2X/DAY
     Dates: start: 20090805, end: 20090817
  2. FEBUXOSTAT [Suspect]
     Indication: GOUT
     Dosage: 40 MG, UNK
     Dates: start: 20090801
  3. VALSARTAN [Concomitant]
     Dosage: UNK
  4. LIPITOR [Concomitant]
     Dosage: UNK
  5. VESICARE [Concomitant]
     Dosage: UNK
  6. SUCRALFATE [Concomitant]
     Dosage: UNK
  7. LAXATIVES [Concomitant]
     Dosage: UNK

REACTIONS (3)
  - DIZZINESS [None]
  - HYPERSOMNIA [None]
  - PAIN IN EXTREMITY [None]
